FAERS Safety Report 5290954-6 (Version None)
Quarter: 2007Q2

REPORT INFORMATION
  Report Type: 
  Country: None (occurrence: None)
  Receive Date: 20070409
  Receipt Date: 20070406
  Transmission Date: 20071010
  Serious: Yes (Death, Disabling)
  Sender: FDA-Public Use
  Company Number: JP-BRISTOL-MYERS SQUIBB COMPANY-13742218

PATIENT
  Age: 49 Year
  Sex: Female

DRUGS (1)
  1. TAXOL [Suspect]
     Indication: INFLAMMATORY CARCINOMA OF THE BREAST
     Route: 041
     Dates: start: 20070316, end: 20070316

REACTIONS (2)
  - MALAISE [None]
  - PLEURAL EFFUSION [None]
